FAERS Safety Report 13385903 (Version 2)
Quarter: 2017Q4

REPORT INFORMATION
  Report Type: Spontaneous
  Country: CA (occurrence: CA)
  Receive Date: 20170330
  Receipt Date: 20171006
  Transmission Date: 20180320
  Serious: Yes (Hospitalization)
  Sender: FDA-Public Use
  Company Number: CA-CONCORDIA PHARMACEUTICALS INC.-GSH201703-002044

PATIENT
  Age: 64 Year
  Sex: Female

DRUGS (8)
  1. ACTEMRA [Concomitant]
     Active Substance: TOCILIZUMAB
  2. ENBREL [Concomitant]
     Active Substance: ETANERCEPT
  3. HUMIRA [Concomitant]
     Active Substance: ADALIMUMAB
  4. ORENCIA [Concomitant]
     Active Substance: ABATACEPT
  5. HYDROXYCHLOROQUINE [Suspect]
     Active Substance: HYDROXYCHLOROQUINE
     Indication: RHEUMATOID ARTHRITIS
     Route: 065
     Dates: start: 2012
  6. NAPROXEN. [Suspect]
     Active Substance: NAPROXEN
     Indication: RHEUMATOID ARTHRITIS
     Route: 065
  7. PREDNISONE. [Suspect]
     Active Substance: PREDNISONE
     Indication: RHEUMATOID ARTHRITIS
     Route: 065
  8. LEFLUNOMIDE. [Suspect]
     Active Substance: LEFLUNOMIDE
     Indication: RHEUMATOID ARTHRITIS
     Dosage: EVERY OTHER DAY
     Route: 048
     Dates: start: 2014

REACTIONS (3)
  - Pain [Not Recovered/Not Resolved]
  - Fatigue [Not Recovered/Not Resolved]
  - Joint instability [Not Recovered/Not Resolved]

NARRATIVE: CASE EVENT DATE: 20151102
